FAERS Safety Report 19199242 (Version 3)
Quarter: 2021Q4

REPORT INFORMATION
  Report Type: Spontaneous
  Country: ES (occurrence: ES)
  Receive Date: 20210430
  Receipt Date: 20211202
  Transmission Date: 20220303
  Serious: Yes (Other)
  Sender: FDA-Public Use
  Company Number: ES-DSJP-DSE-2021-111775

PATIENT
  Age: 54 Year
  Sex: Female

DRUGS (2)
  1. OLMESARTAN [Suspect]
     Active Substance: OLMESARTAN
     Indication: Hypertension
     Dosage: 40 MILLIGRAM
     Route: 065
  2. OLMESARTAN [Suspect]
     Active Substance: OLMESARTAN
     Indication: Blood pressure measurement

REACTIONS (4)
  - Autoimmune hepatitis [Recovered/Resolved]
  - Drug-induced liver injury [Recovered/Resolved]
  - Hepatitis acute [Recovered/Resolved]
  - Weight decreased [Recovering/Resolving]
